FAERS Safety Report 20636611 (Version 1)
Quarter: 2022Q1

REPORT INFORMATION
  Report Type: Spontaneous
  Country: US (occurrence: None)
  Receive Date: 20220324
  Receipt Date: 20220324
  Transmission Date: 20220424
  Serious: Yes (Other)
  Sender: FDA-Public Use
  Company Number: None

PATIENT
  Age: 52 Year
  Sex: Female
  Weight: 63 kg

DRUGS (9)
  1. ESTRADIOL TRANSDERMAL SYSTEM [Suspect]
     Active Substance: ESTRADIOL
     Indication: Hot flush
     Dosage: OTHER QUANTITY : 1 PATCH(ES);?OTHER FREQUENCY : ONCE-WEEKLY;?
     Route: 062
     Dates: start: 20220204, end: 20220218
  2. progesterone 100MG DAILY [Concomitant]
  3. VITAMIN D [Concomitant]
     Active Substance: VITAMIN D NOS
  4. PROBIOTICS NOS [Concomitant]
     Active Substance: PROBIOTICS NOS
  5. HERBALS\TURMERIC [Concomitant]
     Active Substance: HERBALS\TURMERIC
  6. FISH OIL [Concomitant]
     Active Substance: FISH OIL
  7. HERBALS [Concomitant]
     Active Substance: HERBALS
  8. VITAMIN C [Concomitant]
     Active Substance: ASCORBIC ACID
  9. ZINC [Concomitant]
     Active Substance: ZINC

REACTIONS (10)
  - Product substitution issue [None]
  - Product adhesion issue [None]
  - Application site pruritus [None]
  - Application site pain [None]
  - Condition aggravated [None]
  - Application site odour [None]
  - Application site erythema [None]
  - Application site irritation [None]
  - Application site injury [None]
  - Drug ineffective [None]

NARRATIVE: CASE EVENT DATE: 20220204
